FAERS Safety Report 7549614-0 (Version None)
Quarter: 2011Q2

REPORT INFORMATION
  Report Type: 
  Country: None (occurrence: None)
  Receive Date: 20110615
  Receipt Date: 20110607
  Transmission Date: 20111010
  Serious: Yes (Hospitalization)
  Sender: FDA-Public Use
  Company Number: B0726108A

PATIENT
  Sex: Female

DRUGS (6)
  1. ACYCLOVIR [Concomitant]
     Dosage: 800MG PER DAY
     Route: 048
     Dates: start: 20110131, end: 20110407
  2. LOSAPREX [Concomitant]
     Dosage: 25MG PER DAY
     Route: 048
  3. ALKERAN [Suspect]
     Indication: MULTIPLE MYELOMA
     Dosage: 14MG PER DAY
     Route: 048
     Dates: start: 20110131, end: 20110331
  4. ESOMEPRAZOLE MAGNESIUM [Concomitant]
  5. VELCADE [Suspect]
     Indication: MULTIPLE MYELOMA
     Dosage: 2.2MG PER DAY
     Route: 042
     Dates: start: 20110131, end: 20110331
  6. PREDNISONE [Suspect]
     Indication: MULTIPLE MYELOMA
     Dosage: 100MG PER DAY
     Route: 065
     Dates: start: 20110131, end: 20110331

REACTIONS (1)
  - HYPERPYREXIA [None]
